FAERS Safety Report 9795641 (Version 2)
Quarter: 2014Q1

REPORT INFORMATION
  Report Type: Spontaneous
  Country: US (occurrence: US)
  Receive Date: 20140103
  Receipt Date: 20140113
  Transmission Date: 20141002
  Serious: No
  Sender: FDA-Public Use
  Company Number: US-PFIZER INC-2014000317

PATIENT
  Age: 52 Year
  Sex: Male
  Weight: 92.52 kg

DRUGS (9)
  1. LYRICA [Suspect]
     Indication: BACK PAIN
     Dosage: 75 MG, 3X/DAY
     Dates: start: 2013
  2. LYRICA [Suspect]
     Indication: ARTHRALGIA
  3. LYRICA [Suspect]
     Indication: SURGERY
  4. LISINOPRIL [Concomitant]
     Indication: HYPERTENSION
     Dosage: 40 MG, 1X/DAY
  5. LOSARTAN [Concomitant]
     Indication: HYPERTENSION
     Dosage: 800 MG, 3X/DAY
  6. LOVASTATIN [Concomitant]
     Indication: BLOOD CHOLESTEROL ABNORMAL
     Dosage: 40 MG, 1X/DAY
  7. MORPHINE SULFATE [Concomitant]
     Dosage: 40 MG, 1X/DAY
  8. ADDERALL [Concomitant]
     Dosage: UNK
  9. TESTOSTERONE [Concomitant]
     Dosage: UNK

REACTIONS (6)
  - Off label use [Unknown]
  - Agitation [Unknown]
  - Anger [Unknown]
  - Diplopia [Unknown]
  - Wheezing [Unknown]
  - Irritability [Unknown]
